FAERS Safety Report 20870534 (Version 4)
Quarter: 2022Q2

REPORT INFORMATION
  Report Type: Spontaneous
  Country: US (occurrence: US)
  Receive Date: 20220525
  Receipt Date: 20220620
  Transmission Date: 20220721
  Serious: Yes (Hospitalization, Other)
  Sender: FDA-Public Use
  Company Number: US-GILEAD-2022-0582038

PATIENT
  Sex: Male

DRUGS (14)
  1. EPCLUSA [Suspect]
     Active Substance: SOFOSBUVIR\VELPATASVIR
     Indication: Chronic hepatitis C
     Dosage: 1 DOSAGE FORM, QD
     Route: 048
  2. RIBAVIRIN [Concomitant]
     Active Substance: RIBAVIRIN
  3. AMOXICILLIN/CLAVULANIC ACID [AMOXICILLIN SODIUM;CLAVULANATE POTASSIUM] [Concomitant]
  4. CIPROFLOXACIN [Concomitant]
     Active Substance: CIPROFLOXACIN
  5. ALLOPURINOL [Concomitant]
     Active Substance: ALLOPURINOL
  6. ASCORBIC ACID [Concomitant]
     Active Substance: ASCORBIC ACID
  7. VITAMIN D3 [Concomitant]
     Active Substance: CHOLECALCIFEROL
  8. FERROUS FUMARATE [Concomitant]
     Active Substance: FERROUS FUMARATE
  9. LACTULOSE [Concomitant]
     Active Substance: LACTULOSE
  10. MAGNESIUM OXIDE [Concomitant]
     Active Substance: MAGNESIUM OXIDE
  11. VITAMINS NOS [Concomitant]
     Active Substance: VITAMINS
  12. NADOLOL [Concomitant]
     Active Substance: NADOLOL
  13. RIFAXIMIN [Concomitant]
     Active Substance: RIFAXIMIN
  14. TAMSULOSIN HYDROCHLORIDE [Concomitant]
     Active Substance: TAMSULOSIN HYDROCHLORIDE

REACTIONS (6)
  - Septic shock [Unknown]
  - Spontaneous bacterial peritonitis [Unknown]
  - Feeling cold [Unknown]
  - Hypotension [Unknown]
  - Drug ineffective [Unknown]
  - Intentional dose omission [Unknown]
